FAERS Safety Report 7767417-9 (Version None)
Quarter: 2011Q3

REPORT INFORMATION
  Report Type: 
  Country: None (occurrence: None)
  Receive Date: 20110922
  Receipt Date: 20110321
  Transmission Date: 20111222
  Serious: No
  Sender: FDA-Public Use
  Company Number: US-ASTRAZENECA-2011SE15883

PATIENT
  Age: 38 Year
  Sex: Female
  Weight: 136.1 kg

DRUGS (2)
  1. SEROQUEL XR [Suspect]
     Route: 048
  2. NORVASC [Concomitant]
     Indication: HYPERTENSION

REACTIONS (2)
  - HEADACHE [None]
  - ACCIDENTAL EXPOSURE [None]
